FAERS Safety Report 7539212-7 (Version None)
Quarter: 2011Q2

REPORT INFORMATION
  Report Type: 
  Country: None (occurrence: None)
  Receive Date: 20110524
  Receipt Date: 20110407
  Transmission Date: 20111010
  Serious: No
  Sender: FDA-Public Use
  Company Number: 030905

PATIENT
  Sex: Male
  Weight: 78 kg

DRUGS (6)
  1. CIMZIA [Suspect]
     Dosage: (400 MG 1X/28 DAYS SUBCUTANEOUS)
     Route: 057
  2. PROZAC [Concomitant]
  3. CALAN [Concomitant]
  4. LASIX [Concomitant]
  5. ZESTRIL [Concomitant]
  6. AMBIEN [Concomitant]

REACTIONS (1)
  - HYPOAESTHESIA [None]
